FAERS Safety Report 6790103-9 (Version None)
Quarter: 2010Q2

REPORT INFORMATION
  Report Type: 
  Country: None (occurrence: None)
  Receive Date: 20100624
  Receipt Date: 20100617
  Transmission Date: 20101027
  Serious: Yes (Other)
  Sender: FDA-Public Use
  Company Number: US-SANOFI-AVENTIS-2010SA035498

PATIENT
  Age: 66 Year
  Sex: Male

DRUGS (1)
  1. MULTAQ [Suspect]
     Route: 048
     Dates: start: 20100410, end: 20100614

REACTIONS (2)
  - ATRIAL FIBRILLATION [None]
  - HEADACHE [None]
